FAERS Safety Report 12762941 (Version 1)
Quarter: 2016Q3

REPORT INFORMATION
  Report Type: Spontaneous
  Country: US (occurrence: US)
  Receive Date: 20160916
  Receipt Date: 20160916
  Transmission Date: 20161109
  Serious: No
  Sender: FDA-Public Use
  Company Number: None

PATIENT
  Sex: Female

DRUGS (1)
  1. GILENYA [Suspect]
     Active Substance: FINGOLIMOD HYDROCHLORIDE
     Indication: MULTIPLE SCLEROSIS
     Route: 048
     Dates: start: 20151104

REACTIONS (9)
  - Weight decreased [None]
  - Paraesthesia [None]
  - Dysphonia [None]
  - Hypoaesthesia [None]
  - Skin cancer [None]
  - Sinus disorder [None]
  - Night sweats [None]
  - Memory impairment [None]
  - Progressive multifocal leukoencephalopathy [None]
